FAERS Safety Report 6373998-2 (Version None)
Quarter: 2009Q3

REPORT INFORMATION
  Report Type: 
  Country: None (occurrence: None)
  Receive Date: 20090922
  Receipt Date: 20090922
  Transmission Date: 20100115
  Serious: Yes (Disabling)
  Sender: FDA-Public Use
  Company Number: None

PATIENT
  Age: 71 Year
  Sex: Male
  Weight: 65.7716 kg

DRUGS (2)
  1. SIMVASTATIN [Suspect]
     Indication: DYSLIPIDAEMIA
     Dosage: 80MG QHS PO
     Route: 048
     Dates: start: 20081015, end: 20090815
  2. GEMFIBROZIL [Suspect]
     Dosage: 600MG BID PO
     Route: 048

REACTIONS (1)
  - RHABDOMYOLYSIS [None]
